FAERS Safety Report 20550921 (Version 1)
Quarter: 2022Q1

REPORT INFORMATION
  Report Type: Spontaneous
  Country: CA (occurrence: CA)
  Receive Date: 20220304
  Receipt Date: 20220304
  Transmission Date: 20220423
  Serious: Yes (Life-Threatening, Hospitalization, Other)
  Sender: FDA-Public Use
  Company Number: CA-TEVA-2022-CA-2012279

PATIENT
  Age: 16 Year
  Sex: Male
  Weight: 76 kg

DRUGS (61)
  1. FLUDARABINE [Suspect]
     Active Substance: FLUDARABINE PHOSPHATE
     Indication: Prophylaxis against transplant rejection
     Dosage: 56 MILLIGRAM DAILY;
     Route: 042
  2. METHOTREXATE [Suspect]
     Active Substance: METHOTREXATE
     Indication: Prophylaxis against transplant rejection
     Route: 042
  3. BUSULFAN [Suspect]
     Active Substance: BUSULFAN
     Indication: Prophylaxis against transplant rejection
     Dosage: 300 MILLIGRAM DAILY;
     Route: 042
  4. CYCLOPHOSPHAMIDE [Suspect]
     Active Substance: CYCLOPHOSPHAMIDE
     Indication: Prophylaxis against transplant rejection
     Dosage: 3460 MILLIGRAM DAILY;
     Route: 042
  5. GANCICLOVIR [Suspect]
     Active Substance: GANCICLOVIR
     Indication: Cytomegalovirus infection
     Dosage: 1000 MILLIGRAM DAILY;
     Route: 042
  6. LAPINE T-LYMPHOCYTE IMMUNE GLOBULIN [Concomitant]
     Active Substance: LAPINE T-LYMPHOCYTE IMMUNE GLOBULIN
  7. AMLODIPINE [Concomitant]
     Active Substance: AMLODIPINE BESYLATE
     Route: 065
  8. ATROPINE [Concomitant]
     Active Substance: ATROPINE
  9. CALCIUM CARBONATE\CHOLECALCIFEROL [Concomitant]
     Active Substance: CALCIUM CARBONATE\CHOLECALCIFEROL
  10. CETIRIZINE [Concomitant]
     Active Substance: CETIRIZINE HYDROCHLORIDE
  11. CICLESONIDE [Concomitant]
     Active Substance: CICLESONIDE
  12. CIPROFLOXACIN [Concomitant]
     Active Substance: CIPROFLOXACIN
  13. CLONIDINE [Concomitant]
     Active Substance: CLONIDINE
  14. CRESEMBA [Concomitant]
     Active Substance: ISAVUCONAZONIUM SULFATE
     Route: 065
  15. CYCLOBENZAPRINE [Concomitant]
     Active Substance: CYCLOBENZAPRINE
  16. CYCLOSPORINE [Concomitant]
     Active Substance: CYCLOSPORINE
     Route: 065
  17. DEXAMETHASONE [Concomitant]
     Active Substance: DEXAMETHASONE
     Route: 065
  18. DICYCLOMINE HYDROCHLORIDE USP [Concomitant]
  19. DIMENHYDRINATE [Concomitant]
     Active Substance: DIMENHYDRINATE
  20. DOCUSATE [Concomitant]
     Active Substance: DOCUSATE
  21. FAMOTIDINE [Concomitant]
     Active Substance: FAMOTIDINE
  22. FLUCONAZOLE [Concomitant]
     Active Substance: FLUCONAZOLE
  23. FOSCARNET SODIUM [Concomitant]
     Active Substance: FOSCARNET SODIUM
     Route: 042
  24. FUROSEMIDE [Concomitant]
     Active Substance: FUROSEMIDE
     Route: 065
  25. HYDROCORTISONE [Concomitant]
     Active Substance: HYDROCORTISONE
  26. LANSOPRAZOLE [Concomitant]
     Active Substance: LANSOPRAZOLE
  27. LEVETIRACETAM [Concomitant]
     Active Substance: LEVETIRACETAM
     Route: 065
  28. LORAZEPAM [Concomitant]
     Active Substance: LORAZEPAM
     Route: 065
  29. MAGNESIUM [Concomitant]
     Active Substance: MAGNESIUM
  30. MELATONIN [Concomitant]
     Active Substance: MELATONIN
  31. MESNA [Concomitant]
     Active Substance: MESNA
  32. METHOCARBAMOL [Concomitant]
     Active Substance: METHOCARBAMOL
  33. METHYLPREDNISOLONE [Concomitant]
     Active Substance: METHYLPREDNISOLONE
  34. METOCLOPRAMIDE [Concomitant]
     Active Substance: METOCLOPRAMIDE
  35. METOLAZONE [Concomitant]
     Active Substance: METOLAZONE
  36. MYCAMINE [Concomitant]
     Active Substance: MICAFUNGIN SODIUM
  37. MYCOPHENOLIC ACID [Concomitant]
     Active Substance: MYCOPHENOLIC ACID
  38. NIFEDIPINE [Concomitant]
     Active Substance: NIFEDIPINE
  39. NIFEDIPINE [Concomitant]
     Active Substance: NIFEDIPINE
  40. OLANZAPINE [Concomitant]
     Active Substance: OLANZAPINE
  41. ONDANSETRON [Concomitant]
     Active Substance: ONDANSETRON
  42. OXYBUTYNIN [Concomitant]
     Active Substance: OXYBUTYNIN
     Route: 065
  43. PANTOPRAZOLE [Concomitant]
     Active Substance: PANTOPRAZOLE
  44. PENTAM [Concomitant]
     Active Substance: PENTAMIDINE ISETHIONATE
  45. POLYETHYLENE GLYCOL [Concomitant]
     Active Substance: POLYETHYLENE GLYCOL
  46. POSACONAZOLE [Concomitant]
     Active Substance: POSACONAZOLE
  47. POTASSIUM [Concomitant]
     Active Substance: POTASSIUM
  48. PREDNISONE [Concomitant]
     Active Substance: PREDNISONE
  49. PREGABALIN [Concomitant]
     Active Substance: PREGABALIN
  50. PREVYMIS [Concomitant]
     Active Substance: LETERMOVIR
  51. PROTAMINE SULFATE [Concomitant]
     Active Substance: PROTAMINE SULFATE
  52. QUETIAPINE [Concomitant]
     Active Substance: QUETIAPINE
  53. SENNOSIDES [Concomitant]
     Active Substance: SENNOSIDES
  54. SPIRONOLACTONE [Concomitant]
     Active Substance: SPIRONOLACTONE
  55. TACROLIMUS [Concomitant]
     Active Substance: TACROLIMUS
  56. TOBRAMYCIN [Concomitant]
     Active Substance: TOBRAMYCIN
  57. TRANEXAMIC ACID [Concomitant]
     Active Substance: TRANEXAMIC ACID
  58. URSODIOL [Concomitant]
     Active Substance: URSODIOL
  59. VALACYCLOVIR [Concomitant]
     Active Substance: VALACYCLOVIR HYDROCHLORIDE
  60. ZOPICLONE [Concomitant]
     Active Substance: ZOPICLONE
  61. ESCITALOPRAM [Concomitant]
     Active Substance: ESCITALOPRAM OXALATE

REACTIONS (3)
  - Aplastic anaemia [Unknown]
  - Febrile neutropenia [Unknown]
  - Mucosal inflammation [Unknown]
